FAERS Safety Report 18496207 (Version 1)
Quarter: 2020Q4

REPORT INFORMATION
  Report Type: Spontaneous
  Country: IN (occurrence: IN)
  Receive Date: 20201112
  Receipt Date: 20201112
  Transmission Date: 20210114
  Serious: Yes (Other)
  Sender: FDA-Public Use
  Company Number: IN-MYLANLABS-2020M1094396

PATIENT
  Age: 43 Year
  Sex: Male

DRUGS (15)
  1. VINBLASTINE [Suspect]
     Active Substance: VINBLASTINE
     Indication: TESTIS CANCER
     Dosage: 9 MILLIGRAM VEIP REGIMEN
     Route: 065
  2. BLEOMYCIN [Concomitant]
     Active Substance: BLEOMYCIN SULFATE
     Indication: TESTIS CANCER
     Dosage: BEP REGIMEN
     Route: 065
  3. CISPLATIN. [Suspect]
     Active Substance: CISPLATIN
     Indication: TESTIS CANCER
     Dosage: A CUMULATIVE DOSE OF 400 MG/M2 OF CISPLATIN...
     Route: 065
  4. BLEOMYCIN [Concomitant]
     Active Substance: BLEOMYCIN SULFATE
     Indication: METASTASES TO LUNG
  5. VINBLASTINE [Suspect]
     Active Substance: VINBLASTINE
     Indication: TESTICULAR GERM CELL TUMOUR MIXED
  6. IFOSFAMIDE. [Concomitant]
     Active Substance: IFOSFAMIDE
     Indication: METASTASES TO LUNG
  7. ETOPOSIDE. [Concomitant]
     Active Substance: ETOPOSIDE
     Indication: TESTIS CANCER
     Dosage: A CUMULATIVE DOSE OF 2 G/M2 OF ETOPOSIDE...
     Route: 065
  8. ETOPOSIDE. [Concomitant]
     Active Substance: ETOPOSIDE
     Indication: TESTICULAR GERM CELL TUMOUR MIXED
  9. BLEOMYCIN [Concomitant]
     Active Substance: BLEOMYCIN SULFATE
     Indication: TESTICULAR GERM CELL TUMOUR MIXED
  10. IFOSFAMIDE. [Concomitant]
     Active Substance: IFOSFAMIDE
     Indication: TESTIS CANCER
     Dosage: 6 G/M2; VEIP REGIMEN
     Route: 065
  11. CISPLATIN. [Suspect]
     Active Substance: CISPLATIN
     Indication: TESTICULAR GERM CELL TUMOUR MIXED
     Dosage: 100 MILLIGRAM/SQ. METER,VEIP REGIMEN
     Route: 065
  12. VINBLASTINE [Suspect]
     Active Substance: VINBLASTINE
     Indication: METASTASES TO LUNG
  13. CISPLATIN. [Suspect]
     Active Substance: CISPLATIN
     Indication: METASTASES TO LUNG
  14. ETOPOSIDE. [Concomitant]
     Active Substance: ETOPOSIDE
     Indication: METASTASES TO LUNG
  15. IFOSFAMIDE. [Concomitant]
     Active Substance: IFOSFAMIDE
     Indication: TESTICULAR GERM CELL TUMOUR MIXED

REACTIONS (1)
  - Intestinal pseudo-obstruction [Recovered/Resolved]
